FAERS Safety Report 11472970 (Version 1)
Quarter: 2015Q3

REPORT INFORMATION
  Report Type: Report from Study
  Country: ES (occurrence: ES)
  Receive Date: 20150908
  Receipt Date: 20150908
  Transmission Date: 20151125
  Serious: Yes (Hospitalization)
  Sender: FDA-Public Use
  Company Number: ES-JAZZ-2014-ES-000920

PATIENT
  Age: 60 Year
  Sex: Male

DRUGS (7)
  1. VENLAFAXINE [Concomitant]
     Active Substance: VENLAFAXINE HYDROCHLORIDE
     Indication: PROPHYLAXIS
     Dosage: 150 MG, QD
     Route: 048
  2. MODIODAL [Concomitant]
     Active Substance: MODAFINIL
     Indication: HYPERSOMNIA
     Dosage: 100 MG, QD
     Route: 048
  3. ENALAPRIL [Concomitant]
     Active Substance: ENALAPRIL
     Indication: HYPERTENSION
     Dosage: 20/125 MG, UNK
     Route: 048
  4. XYREM [Suspect]
     Active Substance: SODIUM OXYBATE
     Indication: NARCOLEPSY
     Dosage: 6.5 G, QD
     Route: 048
     Dates: start: 20120710
  5. XYREM [Suspect]
     Active Substance: SODIUM OXYBATE
     Indication: CATAPLEXY
  6. BISOPROLOL [Concomitant]
     Active Substance: BISOPROLOL
     Indication: HYPERTENSION
     Dosage: 10 MG, QD
     Route: 048
  7. PRAVASTATIN [Concomitant]
     Active Substance: PRAVASTATIN\PRAVASTATIN SODIUM
     Indication: DYSLIPIDAEMIA
     Dosage: 10 MG, QD
     Route: 048

REACTIONS (1)
  - Bladder cancer [Recovered/Resolved]

NARRATIVE: CASE EVENT DATE: 20120713
